FAERS Safety Report 16439947 (Version 1)
Quarter: 2019Q3

REPORT INFORMATION
  Report Type: Spontaneous
  Country: US (occurrence: US)
  Receive Date: 20190616
  Receipt Date: 20190616
  Transmission Date: 20191004
  Serious: Yes (Other)
  Sender: FDA-Public Use
  Company Number: None

PATIENT
  Age: 38 Year
  Sex: Female
  Weight: 109.35 kg

DRUGS (16)
  1. BUPRENORPHINE 8MG/ NALOXONE 2MG SUBLINGUAL FILM [Suspect]
     Active Substance: BUPRENORPHINE HYDROCHLORIDE\NALOXONE HYDROCHLORIDE
     Indication: DRUG DEPENDENCE
     Dosage: ?          QUANTITY:45 SUBLINGUAL FILM;?
     Route: 060
     Dates: start: 20190610, end: 20190614
  2. CLONODINE [Concomitant]
     Active Substance: CLONIDINE
  3. OMEGA [Concomitant]
     Active Substance: CONVALLARIA MAJALIS\CRATAEGUS LAEVIGATA LEAF\PROXYPHYLLINE
  4. LAMICTAL [Concomitant]
     Active Substance: LAMOTRIGINE
  5. MULTI [Concomitant]
  6. EFFEXXOR [Concomitant]
  7. OCCASIONALLY  ALEVE [Concomitant]
  8. VRAYLAR [Concomitant]
     Active Substance: CARIPRAZINE
  9. IMELATONIN [Concomitant]
  10. BABY ASPIRIN [Concomitant]
     Active Substance: ASPIRIN
  11. NORVASC [Concomitant]
     Active Substance: AMLODIPINE BESYLATE
  12. TRAZODONE [Concomitant]
     Active Substance: TRAZODONE HYDROCHLORIDE
  13. BUSPAR [Concomitant]
     Active Substance: BUSPIRONE HYDROCHLORIDE
  14. ORTHO TRI CYCLEN [Concomitant]
     Active Substance: ETHINYL ESTRADIOL\NORGESTIMATE
  15. IBUPROFEN. [Concomitant]
     Active Substance: IBUPROFEN
  16. TYLENOL [Concomitant]
     Active Substance: ACETAMINOPHEN

REACTIONS (12)
  - Diarrhoea [None]
  - Anxiety [None]
  - Heart rate increased [None]
  - Suicidal ideation [None]
  - Chills [None]
  - Product substitution issue [None]
  - Dehydration [None]
  - Vomiting [None]
  - Hypertension [None]
  - Hyperhidrosis [None]
  - Crying [None]
  - Myalgia [None]

NARRATIVE: CASE EVENT DATE: 20190612
